FAERS Safety Report 21512671 (Version 1)
Quarter: 2022Q4

REPORT INFORMATION
  Report Type: Spontaneous
  Country: US (occurrence: US)
  Receive Date: 20221027
  Receipt Date: 20221027
  Transmission Date: 20230113
  Serious: Yes (Other)
  Sender: FDA-Public Use
  Company Number: US-ORGANON-O2210USA002122

PATIENT
  Sex: Female

DRUGS (4)
  1. FOLLISTIM AQ [Suspect]
     Active Substance: FOLLITROPIN
     Indication: Ovarian failure
     Dosage: 600 UNT/0.72 ML 1=1, INJECT 100 UNITS UNDER THE SKIN (SUBCUTANEOUS INJECTION) STARTING ON CYCLE DAY
     Route: 058
     Dates: end: 2022
  2. CLOMIPHENE CITRATE [Concomitant]
     Active Substance: CLOMIPHENE CITRATE
     Dosage: UNK
  3. LOVENOX [Concomitant]
     Active Substance: ENOXAPARIN SODIUM
     Dosage: UNK
  4. PRENATAL 19 [Concomitant]
     Active Substance: .ALPHA.-TOCOPHEROL ACETATE, DL-\.BETA.-CAROTENE\ASCORBIC ACID\CALCIUM CARBONATE\CALCIUM PANTOTHENATE
     Dosage: UNK

REACTIONS (1)
  - Product use in unapproved indication [Unknown]
